FAERS Safety Report 19649227 (Version 1)
Quarter: 2021Q3

REPORT INFORMATION
  Report Type: Report from Study
  Country: DE (occurrence: DE)
  Receive Date: 20210802
  Receipt Date: 20210802
  Transmission Date: 20211014
  Serious: Yes (Death, Other)
  Sender: FDA-Public Use
  Company Number: DE-JAZZ-2021-DE-013883

PATIENT
  Age: 75 Year

DRUGS (1)
  1. DEFITELIO [Suspect]
     Active Substance: DEFIBROTIDE SODIUM
     Indication: VENOOCCLUSIVE DISEASE
     Dosage: UNKNOWN DOSE
     Dates: start: 20200112, end: 20200118

REACTIONS (1)
  - Death [Fatal]

NARRATIVE: CASE EVENT DATE: 202001
